FAERS Safety Report 7591754-4 (Version None)
Quarter: 2011Q3

REPORT INFORMATION
  Report Type: 
  Country: None (occurrence: None)
  Receive Date: 20110706
  Receipt Date: 20110621
  Transmission Date: 20111222
  Serious: Yes (Hospitalization, Other)
  Sender: FDA-Public Use
  Company Number: HK-RANBAXY-2011RR-45733

PATIENT
  Sex: Female

DRUGS (3)
  1. NICERGOLINE [Concomitant]
     Indication: DEMENTIA
     Route: 067
  2. SIMVASTATIN [Suspect]
     Dosage: 40 MG/DAY
  3. DILTIAZEM [Suspect]
     Indication: HYPERTENSION
     Dosage: 60 MG, BID
     Route: 065

REACTIONS (7)
  - RENAL IMPAIRMENT [None]
  - MUSCULAR WEAKNESS [None]
  - MYOPATHY [None]
  - DRUG INTERACTION [None]
  - BLOOD CREATINE PHOSPHOKINASE INCREASED [None]
  - BLOOD LACTATE DEHYDROGENASE INCREASED [None]
  - ALANINE AMINOTRANSFERASE INCREASED [None]
